FAERS Safety Report 6064558-1 (Version None)
Quarter: 2009Q1

REPORT INFORMATION
  Report Type: 
  Country: None (occurrence: None)
  Receive Date: 20090204
  Receipt Date: 20090129
  Transmission Date: 20090719
  Serious: Yes (Hospitalization)
  Sender: FDA-Public Use
  Company Number: A0766657A

PATIENT
  Age: 69 Year
  Sex: Female
  Weight: 106.8 kg

DRUGS (4)
  1. AVANDIA [Suspect]
     Dosage: 4MG PER DAY
     Route: 048
     Dates: start: 20010112, end: 20031201
  2. LASIX [Concomitant]
  3. ALTACE [Concomitant]
  4. SYNTHROID [Concomitant]

REACTIONS (5)
  - ARTERIOSCLEROSIS [None]
  - CARDIAC DISORDER [None]
  - CORONARY ARTERY DISEASE [None]
  - HYPERLIPIDAEMIA [None]
  - MYOCARDIAL INFARCTION [None]
